FAERS Safety Report 21334498 (Version 2)
Quarter: 2023Q1

REPORT INFORMATION
  Report Type: Report from Study
  Country: EG (occurrence: EG)
  Receive Date: 20220914
  Receipt Date: 20230307
  Transmission Date: 20230417
  Serious: Yes (Other)
  Sender: FDA-Public Use
  Company Number: EG-NOVARTISPH-NVSC2022EG205120

PATIENT
  Sex: Male

DRUGS (3)
  1. COSENTYX [Suspect]
     Active Substance: SECUKINUMAB
     Indication: Ankylosing spondylitis
     Dosage: 150 MG, QMO
     Route: 058
     Dates: start: 2017
  2. DIVIDO [Concomitant]
     Indication: Product used for unknown indication
     Dosage: UNK
     Route: 065
  3. POLYFRESH [Concomitant]
     Indication: Eye disorder
     Dosage: UNK, QD
     Route: 065
     Dates: start: 2018

REACTIONS (4)
  - Immunodeficiency [Unknown]
  - Autoimmune disorder [Not Recovered/Not Resolved]
  - Condition aggravated [Unknown]
  - Dry eye [Unknown]

NARRATIVE: CASE EVENT DATE: 20170101
